FAERS Safety Report 5705730-7 (Version None)
Quarter: 2008Q2

REPORT INFORMATION
  Report Type: 
  Country: None (occurrence: None)
  Receive Date: 20080415
  Receipt Date: 20080404
  Transmission Date: 20081010
  Serious: Yes (Hospitalization)
  Sender: FDA-Public Use
  Company Number: B0515507A

PATIENT
  Age: 80 Year
  Sex: Female

DRUGS (2)
  1. AUGMENTIN '125' [Suspect]
     Route: 048
     Dates: start: 20070927, end: 20071003
  2. AMOXICILLINE + ACIDE CLAVULANIQUE [Suspect]
     Route: 048
     Dates: start: 20071005, end: 20071005

REACTIONS (3)
  - MALAISE [None]
  - RASH [None]
  - URTICARIA [None]
